FAERS Safety Report 5420956-8 (Version None)
Quarter: 2007Q3

REPORT INFORMATION
  Report Type: 
  Country: None (occurrence: None)
  Receive Date: 20070817
  Receipt Date: 20070803
  Transmission Date: 20080115
  Serious: Yes (Death)
  Sender: FDA-Public Use
  Company Number: 070806-0000738

PATIENT
  Age: 6 Day

DRUGS (1)
  1. NEOPROFEN [Suspect]
     Indication: DRUG USE FOR UNKNOWN INDICATION

REACTIONS (5)
  - DEATH NEONATAL [None]
  - HAEMORRHAGE NEONATAL [None]
  - NEONATAL DISORDER [None]
  - OPERATIVE HAEMORRHAGE [None]
  - PATENT DUCTUS ARTERIOSUS [None]
